FAERS Safety Report 26055946 (Version 1)
Quarter: 2025Q4

REPORT INFORMATION
  Report Type: Spontaneous
  Country: CH (occurrence: CH)
  Receive Date: 20251118
  Receipt Date: 20251118
  Transmission Date: 20260117
  Serious: Yes (Hospitalization)
  Sender: ASTELLAS
  Company Number: None

PATIENT
  Age: 58 Year
  Sex: Female
  Weight: 43 kg

DRUGS (20)
  1. PROGRAF [Interacting]
     Active Substance: TACROLIMUS
     Indication: Lung transplant
     Dosage: 4MG-0-4.5 MG
     Route: 065
     Dates: end: 20250901
  2. PROGRAF [Interacting]
     Active Substance: TACROLIMUS
     Dosage: 3MG-0- 4MG
     Route: 065
     Dates: start: 20250902, end: 20250910
  3. PROGRAF [Interacting]
     Active Substance: TACROLIMUS
     Dosage: 2-0-2 MG
     Route: 065
     Dates: start: 20250911, end: 20250912
  4. PROGRAF [Interacting]
     Active Substance: TACROLIMUS
     Dosage: 2-2-2 MG
     Route: 065
     Dates: start: 20250913
  5. DIFLUCAN [Interacting]
     Active Substance: FLUCONAZOLE
     Indication: Oral candidiasis
     Route: 065
     Dates: start: 20250829, end: 20250829
  6. DIFLUCAN [Interacting]
     Active Substance: FLUCONAZOLE
     Dosage: FOR AT LEAST 7 DAYS
     Route: 065
     Dates: start: 20250830, end: 20250910
  7. DIFLUCAN [Interacting]
     Active Substance: FLUCONAZOLE
     Route: 065
     Dates: start: 20250911, end: 20250911
  8. ATOVAQUONE [Concomitant]
     Active Substance: ATOVAQUONE
     Indication: Product used for unknown indication
     Route: 048
  9. CALCIUM [Concomitant]
     Active Substance: CALCIUM
     Indication: Product used for unknown indication
     Route: 048
  10. CYCLOSPORINE [Concomitant]
     Active Substance: CYCLOSPORINE
     Indication: Product used for unknown indication
     Route: 047
  11. PALLADONE [Concomitant]
     Active Substance: HYDROMORPHONE HYDROCHLORIDE
     Indication: Product used for unknown indication
     Route: 048
  12. Neurodol [Concomitant]
     Indication: Product used for unknown indication
     Route: 061
  13. IMODIUM [Concomitant]
     Active Substance: LOPERAMIDE HYDROCHLORIDE
     Indication: Product used for unknown indication
     Route: 060
  14. MAGNESIUM [Concomitant]
     Active Substance: MAGNESIUM
     Indication: Product used for unknown indication
     Route: 048
  15. METOPROLOL SUCCINATE [Concomitant]
     Active Substance: METOPROLOL SUCCINATE
     Indication: Product used for unknown indication
     Route: 048
  16. MYFORTIC [Concomitant]
     Active Substance: MYCOPHENOLATE SODIUM
     Indication: Product used for unknown indication
     Route: 065
  17. MIRCERA [Concomitant]
     Active Substance: METHOXY POLYETHYLENE GLYCOL-EPOETIN BETA
     Indication: Product used for unknown indication
     Route: 065
  18. PREDNISOLONE [Concomitant]
     Active Substance: PREDNISOLONE
     Indication: Product used for unknown indication
     Route: 065
  19. PRUCALOPRIDE SUCCINATE [Concomitant]
     Active Substance: PRUCALOPRIDE SUCCINATE
     Indication: Product used for unknown indication
     Route: 065
  20. PANTOPRAZOLE SODIUM [Concomitant]
     Active Substance: PANTOPRAZOLE SODIUM
     Indication: Product used for unknown indication
     Route: 065

REACTIONS (3)
  - Immunosuppressant drug level increased [Recovering/Resolving]
  - Acute kidney injury [Recovering/Resolving]
  - Drug interaction [Recovering/Resolving]

NARRATIVE: CASE EVENT DATE: 20250901
